FAERS Safety Report 9580120 (Version 2)
Quarter: 2013Q4

REPORT INFORMATION
  Report Type: Spontaneous
  Country: RO (occurrence: None)
  Receive Date: 20130930
  Receipt Date: 20131008
  Transmission Date: 20140711
  Serious: Yes (Hospitalization)
  Sender: FDA-Public Use
  Company Number: RO-013113

PATIENT
  Age: 7 Year
  Sex: Male

DRUGS (1)
  1. ZOMACTON [Suspect]
     Indication: GROWTH HORMONE DEFICIENCY
     Route: 058
     Dates: start: 201306, end: 20130918

REACTIONS (6)
  - Abdominal pain [None]
  - Meningitis [None]
  - Bacteriuria [None]
  - Anaemia [None]
  - Injection site bruising [None]
  - Acute tonsillitis [None]
